FAERS Safety Report 5694690-3 (Version None)
Quarter: 2008Q2

REPORT INFORMATION
  Report Type: 
  Country: None (occurrence: None)
  Receive Date: 20080404
  Receipt Date: 20080401
  Transmission Date: 20081010
  Serious: Yes (Other)
  Sender: FDA-Public Use
  Company Number: B0361603A

PATIENT
  Age: 33 Year
  Sex: Female

DRUGS (3)
  1. PAROXETINE HCL [Suspect]
     Route: 065
     Dates: start: 19960118
  2. LITHIUM CARBONATE [Suspect]
  3. CARBAMAZEPINE [Concomitant]

REACTIONS (7)
  - AGITATION [None]
  - ANXIETY [None]
  - OVERDOSE [None]
  - RESTLESSNESS [None]
  - SUICIDAL IDEATION [None]
  - SUICIDE ATTEMPT [None]
  - WITHDRAWAL SYNDROME [None]
